FAERS Safety Report 5166203-6 (Version None)
Quarter: 2006Q4

REPORT INFORMATION
  Report Type: 
  Country: None (occurrence: None)
  Receive Date: 20061124
  Receipt Date: 20061115
  Transmission Date: 20070319
  Serious: Yes (Other)
  Sender: FDA-Public Use
  Company Number: 200410551BBE

PATIENT
  Sex: Male

DRUGS (8)
  1. HYPRHO-D [Suspect]
     Indication: DRUG USE FOR UNKNOWN INDICATION
     Dosage: UNK, NI, NI
  2. IMMUNE GLOBULIN (HUMAN) [Suspect]
     Indication: DRUG USE FOR UNKNOWN INDICATION
     Dosage: UNK, NI, NI
  3. IMMUNE GLOBULIN (HUMAN) [Suspect]
     Dosage: NI
  4. IMMUNE GLOBULIN (HUMAN) [Suspect]
     Dosage: NI
  5. IMMUNE GLOBULIN (HUMAN) [Suspect]
     Dosage: NI
  6. IMMUNE GLOBULIN (HUMAN) [Suspect]
     Dosage: NI
  7. IMMUNE GLOBULIN (HUMAN) [Suspect]
     Dosage: NI
  8. IMMUNE GLOBULIN (HUMAN) [Suspect]
     Dosage: NI

REACTIONS (12)
  - ABNORMAL BEHAVIOUR [None]
  - AGGRESSION [None]
  - AUTISM [None]
  - DEAFNESS [None]
  - DEVELOPMENTAL DELAY [None]
  - DIARRHOEA [None]
  - ENCEPHALOPATHY [None]
  - HEAD BANGING [None]
  - NERVOUS SYSTEM DISORDER [None]
  - OPPOSITIONAL DEFIANT DISORDER [None]
  - SCREAMING [None]
  - SPEECH DISORDER DEVELOPMENTAL [None]
